FAERS Safety Report 14195007 (Version 5)
Quarter: 2018Q2

REPORT INFORMATION
  Report Type: Report from Study
  Country: JP (occurrence: JP)
  Receive Date: 20171116
  Receipt Date: 20180518
  Transmission Date: 20180711
  Serious: Yes (Hospitalization)
  Sender: FDA-Public Use
  Company Number: JP-PFIZER INC-2017481889

PATIENT
  Age: 64 Year
  Sex: Male
  Weight: 70.5 kg

DRUGS (4)
  1. RESTAMIN A KOWA [Concomitant]
     Indication: PREMEDICATION
     Dosage: 30 MG,  PREMEDICATION OF THE AVELUMAB
     Route: 048
     Dates: start: 20170912, end: 20171024
  2. INLYTA [Suspect]
     Active Substance: AXITINIB
     Indication: RENAL CELL CARCINOMA
     Dosage: 5 MG, 2X/DAY CONTINUOUSLY
     Route: 048
     Dates: start: 20170912, end: 20171107
  3. ACETAMINOPHEN. [Concomitant]
     Active Substance: ACETAMINOPHEN
     Indication: PREMEDICATION
     Dosage: 600 MG, PREMEDICATION OF THE AVELUMAB
     Route: 048
     Dates: start: 20170912, end: 20171024
  4. AVELUMAB [Suspect]
     Active Substance: AVELUMAB
     Indication: RENAL CELL CARCINOMA
     Dosage: 720 MG, CYCLIC (EVERY 2 WEEK)
     Route: 042
     Dates: start: 20170912, end: 20171024

REACTIONS (1)
  - Hepatic function abnormal [Recovered/Resolved]

NARRATIVE: CASE EVENT DATE: 20171107
